FAERS Safety Report 8014527-7 (Version None)
Quarter: 2011Q4

REPORT INFORMATION
  Report Type: 
  Country: None (occurrence: None)
  Receive Date: 20111229
  Receipt Date: 20111219
  Transmission Date: 20120403
  Serious: Yes (Death)
  Sender: FDA-Public Use
  Company Number: US-PFIZER INC-2011310477

PATIENT
  Age: 53 Year
  Sex: Female

DRUGS (8)
  1. CARISOPRODOL [Suspect]
     Route: 048
  2. FENTANYL-100 [Suspect]
     Dosage: UNK
     Route: 062
  3. LEVOTHYROXINE SODIUM [Suspect]
     Route: 048
  4. ACETAMINOPHEN AND HYDROCODONE BITARTRATE [Suspect]
     Route: 048
  5. ACETAMINOPHEN AND OXYCODONE HCL [Suspect]
     Route: 048
  6. TOLTERODINE TARTRATE [Suspect]
     Route: 048
  7. ALPRAZOLAM [Suspect]
     Route: 048
  8. ZOLPIDEM [Suspect]
     Route: 048

REACTIONS (1)
  - COMPLETED SUICIDE [None]
